FAERS Safety Report 9112311 (Version 1)
Quarter: 2013Q1

REPORT INFORMATION
  Report Type: Spontaneous
  Country: US (occurrence: US)
  Receive Date: 20130219
  Receipt Date: 20130219
  Transmission Date: 20140127
  Serious: No
  Sender: FDA-Public Use
  Company Number: US-BRISTOL-MYERS SQUIBB COMPANY-17024001

PATIENT
  Age: 43 Year
  Sex: Female
  Weight: 58.96 kg

DRUGS (10)
  1. ABATACEPT SUBQ INJECTION 125MG/ML [Suspect]
     Indication: RHEUMATOID ARTHRITIS
     Dosage: PRESCRIP #:371677; LAST DOSE:05-OCT-2012;TAKEN 4 INJECTIONS.
     Route: 058
     Dates: start: 20120910
  2. DESMOPRESSIN ACETATE [Concomitant]
  3. ESTRADIOL [Concomitant]
  4. FENTANYL PATCH [Concomitant]
  5. FISH OIL [Concomitant]
  6. FLAXSEED OIL [Concomitant]
  7. GABAPENTIN [Concomitant]
  8. PLAQUENIL [Concomitant]
     Dosage: TAB
  9. LORTAB [Concomitant]
     Dosage: 1DF=7.5/500MG 1-2 TABS EVERY 5-6HRS
  10. MULTIVITAMIN [Concomitant]

REACTIONS (1)
  - Dysphonia [Unknown]
